FAERS Safety Report 15744941 (Version 1)
Quarter: 2018Q4

REPORT INFORMATION
  Report Type: Report from Study
  Country: US (occurrence: US)
  Receive Date: 20181220
  Receipt Date: 20181220
  Transmission Date: 20190205
  Serious: Yes (Hospitalization)
  Sender: FDA-Public Use
  Company Number: US-EMD SERONO-9059199

PATIENT
  Age: 57 Year
  Sex: Female

DRUGS (3)
  1. IRON AND VITAMIN C [Concomitant]
     Indication: RED BLOOD CELL COUNT DECREASED
  2. REBIF [Suspect]
     Active Substance: INTERFERON BETA-1A
     Indication: PRODUCT USED FOR UNKNOWN INDICATION
     Route: 058
     Dates: start: 20160101
  3. IRON                               /00023503/ [Concomitant]
     Active Substance: IRON
     Indication: RED BLOOD CELL COUNT DECREASED
     Dosage: INFUSION
     Route: 042

REACTIONS (2)
  - Hypertension [Unknown]
  - Headache [Recovering/Resolving]

NARRATIVE: CASE EVENT DATE: 201810
